FAERS Safety Report 7480600-5 (Version None)
Quarter: 2011Q2

REPORT INFORMATION
  Report Type: 
  Country: None (occurrence: None)
  Receive Date: 20110516
  Receipt Date: 20110509
  Transmission Date: 20111010
  Serious: Yes (Death, Hospitalization)
  Sender: FDA-Public Use
  Company Number: TR-ASTELLAS-2011EU002692

PATIENT
  Age: 52 Year
  Sex: Male

DRUGS (7)
  1. VALGANCICLOVIR [Concomitant]
     Indication: CYTOMEGALOVIRUS INFECTION
     Dosage: UNK
     Route: 065
     Dates: start: 20080301
  2. MYCOPHENOLATE MOFETIL [Suspect]
     Indication: RENAL TRANSPLANT
     Dosage: UNK
     Route: 065
     Dates: start: 20071101, end: 20080601
  3. COTRIM [Concomitant]
     Indication: INFECTION
     Dosage: UNK
     Route: 065
  4. PREDNISOLONE [Suspect]
     Indication: RENAL TRANSPLANT
     Dosage: UNK
     Route: 065
     Dates: start: 20071101, end: 20080601
  5. ACYCLOVIR [Concomitant]
     Indication: INFECTION
     Dosage: UNK
     Route: 065
  6. ANTI-THYMOCYTE GLOBULIN NOS [Suspect]
     Indication: TRANSPLANT
     Dosage: UNK
     Route: 065
     Dates: start: 20071101, end: 20071101
  7. TACROLIMUS [Suspect]
     Indication: RENAL TRANSPLANT
     Dosage: UNK
     Route: 065
     Dates: start: 20071101, end: 20080601

REACTIONS (2)
  - CEREBROVASCULAR ACCIDENT [None]
  - ENCEPHALITIS [None]
